FAERS Safety Report 6188119-9 (Version None)
Quarter: 2009Q2

REPORT INFORMATION
  Report Type: 
  Country: None (occurrence: None)
  Receive Date: 20090513
  Receipt Date: 20090506
  Transmission Date: 20091009
  Serious: Yes (Other)
  Sender: FDA-Public Use
  Company Number: US-BAYER-200920227NA

PATIENT
  Age: 44 Year
  Sex: Female

DRUGS (1)
  1. MAGNEVIST [Suspect]
     Indication: OSTEOMYELITIS
     Dosage: TOTAL DAILY DOSE: 10 ML
     Dates: start: 20090505, end: 20090505

REACTIONS (7)
  - CHEST PAIN [None]
  - EYE SWELLING [None]
  - LACRIMATION INCREASED [None]
  - LIP SWELLING [None]
  - OCULAR HYPERAEMIA [None]
  - PRODUCTIVE COUGH [None]
  - VOMITING [None]
